FAERS Safety Report 7897782-3 (Version None)
Quarter: 2011Q4

REPORT INFORMATION
  Report Type: 
  Country: None (occurrence: None)
  Receive Date: 20111107
  Receipt Date: 20111031
  Transmission Date: 20120403
  Serious: Yes (Other)
  Sender: FDA-Public Use
  Company Number: US-ROCHE-1009055

PATIENT
  Age: 60 Year
  Sex: Male

DRUGS (1)
  1. AVASTIN [Suspect]
     Indication: PROSTATIC SPECIFIC ANTIGEN INCREASED
     Route: 065

REACTIONS (2)
  - HYPERTENSION [None]
  - ATRIAL FIBRILLATION [None]
